FAERS Safety Report 23780851 (Version 2)
Quarter: 2025Q3

REPORT INFORMATION
  Report Type: Spontaneous
  Country: EU (occurrence: EU)
  Receive Date: 20240425
  Receipt Date: 20250819
  Transmission Date: 20251020
  Serious: Yes (Hospitalization)
  Sender: TEVA
  Company Number: EU-TEVA-VS-3149592

PATIENT
  Age: 10 Month
  Sex: Female

DRUGS (1)
  1. COPAXONE [Suspect]
     Active Substance: GLATIRAMER ACETATE
     Indication: Multiple sclerosis
     Route: 064
     Dates: start: 20220612

REACTIONS (2)
  - Neonatal hypoxia [Recovered/Resolved]
  - Foetal exposure during pregnancy [Unknown]
